FAERS Safety Report 4923599-5 (Version None)
Quarter: 2006Q1

REPORT INFORMATION
  Report Type: 
  Country: None (occurrence: None)
  Receive Date: 20060221
  Receipt Date: 20060207
  Transmission Date: 20060701
  Serious: Yes (Life-Threatening)
  Sender: FDA-Public Use
  Company Number: 2006019578

PATIENT
  Age: 66 Year
  Sex: Male
  Weight: 70 kg

DRUGS (5)
  1. LIPITOR [Suspect]
     Indication: HYPERCHOLESTEROLAEMIA
     Dosage: 20 MG (20 MG, 1 IN 1 D), ORAL
     Route: 048
     Dates: start: 20000601, end: 20060120
  2. XATRAL (ALFUZOSIN) [Concomitant]
  3. ACETAMINOPHEN [Concomitant]
  4. THYRAX (LEVOTHYROXINE) [Concomitant]
  5. OXAZEPAM [Concomitant]

REACTIONS (2)
  - MYALGIA [None]
  - SUICIDAL IDEATION [None]
